FAERS Safety Report 16784114 (Version 3)
Quarter: 2020Q1

REPORT INFORMATION
  Report Type: Other
  Country: FR (occurrence: FR)
  Receive Date: 20190909
  Receipt Date: 20200204
  Transmission Date: 20200409
  Serious: Yes (Hospitalization)
  Sender: FDA-Public Use
  Company Number: FR-CELLTRION INC.-2019FR024262

PATIENT

DRUGS (11)
  1. RITUXIMAB (UNKNOWN) [Suspect]
     Active Substance: RITUXIMAB
     Indication: B-CELL LYMPHOMA
     Dosage: 700 MG, 2 WEEK (CUMULATIVE DOSE TO FIRST REACTION: 674.545MG)
     Route: 042
     Dates: start: 20190605, end: 20190729
  2. CYCLOPHOSPHAMIDE. [Suspect]
     Active Substance: CYCLOPHOSPHAMIDE
     Indication: B-CELL LYMPHOMA
     Dosage: 1500 MG EVERY 2 WEEKS (CUMULATIVE DOSE TO FIRST REACTION: 9000MG)
     Route: 042
     Dates: start: 20190605, end: 20190715
  3. DOXORUBICINE [DOXORUBICIN] [Suspect]
     Active Substance: DOXORUBICIN
     Indication: B-CELL LYMPHOMA
     Dosage: 1000 MG, 2 WEEKS (CUMULATIVE DOSE TO FIRST REACTION: 6000MG)
     Route: 042
     Dates: start: 20190605, end: 20190715
  4. FILGRASTIM [Concomitant]
     Active Substance: FILGRASTIM
     Indication: COLONY STIMULATING FACTOR THERAPY
     Dosage: 240 MIU, EVERY 2 WEEK
     Route: 058
     Dates: start: 20190610, end: 201907
  5. OMEPRAZOLE. [Concomitant]
     Active Substance: OMEPRAZOLE
     Indication: PROPHYLAXIS AGAINST GASTROINTESTINAL ULCER
     Dosage: 20 MG, 1 DAY (CUMULATIVE DOSE TO FIRST REACTION: 260MG)
     Route: 048
     Dates: start: 20190715, end: 20190729
  6. VALACICLOVIR [Concomitant]
     Active Substance: VALACYCLOVIR HYDROCHLORIDE
     Indication: ANTIVIRAL PROPHYLAXIS
     Dosage: 1000 MG, 1 DAY (CUMULATIVE DOSE TO FIRST REACTION: 53000MG)
     Route: 048
     Dates: start: 20190605, end: 20190729
  7. SULFATE DE VINCRISTINE [Suspect]
     Active Substance: VINCRISTINE SULFATE
     Indication: B-CELL LYMPHOMA
     Dosage: 2 MG, EVERY 2 WEEKS
     Route: 042
     Dates: start: 20190605, end: 20190715
  8. PREDNISONE. [Suspect]
     Active Substance: PREDNISONE
     Indication: B-CELL LYMPHOMA
     Dosage: 400 MG, 2 WEEKS
     Route: 048
     Dates: start: 20190605, end: 201907
  9. BACTRIM [Concomitant]
     Active Substance: SULFAMETHOXAZOLE\TRIMETHOPRIM
     Indication: OPPORTUNISTIC INFECTION PROPHYLAXIS
     Dosage: 3 DF, 1 WEEK (CUMULATIVE DOSE TO FIRST REACTION:2.891 DF)
     Route: 048
     Dates: start: 20190605, end: 20190729
  10. FOLINATE CALCIQUE [Concomitant]
     Active Substance: LEUCOVORIN CALCIUM
     Indication: VITAMIN SUPPLEMENTATION
     Dosage: 25 MG, 1 WEEK
     Route: 048
     Dates: start: 20190605, end: 201907
  11. MESNA. [Concomitant]
     Active Substance: MESNA
     Indication: PROPHYLAXIS
     Dosage: 1500 MG, 2 WEEK
     Route: 042
     Dates: start: 20190606, end: 201907

REACTIONS (3)
  - Underdose [Unknown]
  - Hepatitis E [Not Recovered/Not Resolved]
  - Hepatocellular injury [Not Recovered/Not Resolved]

NARRATIVE: CASE EVENT DATE: 20190727
